FAERS Safety Report 8477233-0 (Version None)
Quarter: 2012Q2

REPORT INFORMATION
  Report Type: 
  Country: None (occurrence: None)
  Receive Date: 20120629
  Receipt Date: 20120622
  Transmission Date: 20120825
  Serious: Yes (Other)
  Sender: FDA-Public Use
  Company Number: US-BAYER-2012-062887

PATIENT
  Sex: Female

DRUGS (1)
  1. MIRENA [Suspect]
     Dosage: 20 MCG/24HR, CONT

REACTIONS (4)
  - MENORRHAGIA [None]
  - DEVICE EXPULSION [None]
  - DYSMENORRHOEA [None]
  - DEVICE DISLOCATION [None]
